FAERS Safety Report 14121119 (Version 1)
Quarter: 2017Q4

REPORT INFORMATION
  Report Type: Spontaneous
  Country: US (occurrence: US)
  Receive Date: 20171024
  Receipt Date: 20171024
  Transmission Date: 20180321
  Serious: No
  Sender: FDA-Public Use
  Company Number: US-SA-2017SA145816

PATIENT
  Sex: Female

DRUGS (4)
  1. LUMIZYME [Suspect]
     Active Substance: ALGLUCOSIDASE ALFA
     Route: 041
  2. BENADRYL [Concomitant]
     Active Substance: DIPHENHYDRAMINE HYDROCHLORIDE
     Indication: PREMEDICATION
     Route: 065
  3. LUMIZYME [Suspect]
     Active Substance: ALGLUCOSIDASE ALFA
     Route: 041
  4. PEPCID [Concomitant]
     Active Substance: FAMOTIDINE
     Indication: PREMEDICATION
     Route: 065

REACTIONS (1)
  - Infusion related reaction [Unknown]
